FAERS Safety Report 17485299 (Version 11)
Quarter: 2023Q4

REPORT INFORMATION
  Report Type: Spontaneous
  Country: DE (occurrence: DE)
  Receive Date: 20200302
  Receipt Date: 20231026
  Transmission Date: 20240109
  Serious: Yes (Hospitalization, Other)
  Sender: FDA-Public Use
  Company Number: DE-002147023-PHHY2019DE218334

PATIENT
  Age: 49 Year
  Sex: Female
  Weight: 70 kg

DRUGS (23)
  1. ABEMACICLIB [Suspect]
     Active Substance: ABEMACICLIB
     Indication: Hormone receptor positive HER2 negative breast cancer
     Dosage: UNK UNK, UNKNOWN
     Route: 065
     Dates: start: 20200127
  2. ZOMETA [Suspect]
     Active Substance: ZOLEDRONIC ACID
     Indication: Metastases to bone
     Dosage: 4 MG, MONTHLY (1/M)
     Route: 042
     Dates: start: 20191004
  3. ZOMETA [Suspect]
     Active Substance: ZOLEDRONIC ACID
     Indication: Prophylaxis
     Dosage: 4 MG, UNKNOWN
     Route: 065
     Dates: start: 20191227
  4. KISQALI [Suspect]
     Active Substance: RIBOCICLIB
     Indication: Hormone receptor positive HER2 negative breast cancer
     Dosage: 600 MG, DAILY
     Route: 048
     Dates: start: 20190829, end: 20190918
  5. KISQALI [Suspect]
     Active Substance: RIBOCICLIB
     Dosage: 400 MG, DAILY (21 DAYS INTAKE, 7 DAYS PAUSE)
     Route: 048
     Dates: start: 20191004, end: 20191031
  6. LETROZOLE [Suspect]
     Active Substance: LETROZOLE
     Indication: Hormone receptor positive HER2 negative breast cancer
     Dosage: 2.5 MG, DAILY
     Route: 048
     Dates: start: 20190829, end: 20200119
  7. IBUPROFEN [Suspect]
     Active Substance: IBUPROFEN
     Indication: Back pain
     Dosage: 2 TABLETS, DAILY
     Route: 065
     Dates: start: 20190912, end: 20190913
  8. IBUPROFEN [Suspect]
     Active Substance: IBUPROFEN
     Indication: Headache
     Dosage: 1 TABLET, BID
     Route: 065
     Dates: start: 20190919, end: 20190920
  9. IBUPROFEN [Suspect]
     Active Substance: IBUPROFEN
     Indication: Spinal pain
     Dosage: 600 MG, QD AS NEEDED
     Route: 065
     Dates: start: 202212
  10. IBUPROFEN [Suspect]
     Active Substance: IBUPROFEN
     Indication: Pathological fracture
     Dosage: 600 MG, PRN
     Route: 065
     Dates: start: 20221215, end: 20230226
  11. IBUPROFEN [Suspect]
     Active Substance: IBUPROFEN
     Indication: Fall
     Dosage: 600 MG, PRN
     Route: 065
     Dates: start: 20230227, end: 20230305
  12. IBUPROFEN [Suspect]
     Active Substance: IBUPROFEN
     Dosage: 600 MG, TID
     Route: 065
     Dates: start: 20230306, end: 20230313
  13. IBUPROFEN [Suspect]
     Active Substance: IBUPROFEN
     Dosage: 600 MG, PRN
     Route: 065
  14. SELENIUM [Suspect]
     Active Substance: SELENIUM
     Indication: Selenium deficiency
     Dosage: UNK, OTHER (UNK, MG/DAY, 2X/WEEK)
     Route: 065
     Dates: start: 20221215
  15. GONADORELIN [Suspect]
     Active Substance: GONADORELIN
     Indication: Breast cancer
     Dosage: 3.6 MG, MONTHLY (1/M)
     Route: 058
     Dates: start: 20190828
  16. GOSERELIN [Suspect]
     Active Substance: GOSERELIN
     Indication: Product used for unknown indication
     Dosage: 3.6 MG, UNKNOWN
     Route: 058
     Dates: start: 20190828, end: 20190828
  17. GOSERELIN [Suspect]
     Active Substance: GOSERELIN
     Dosage: UNK, UNKNOWN
     Route: 065
  18. CALCIUM\CHOLECALCIFEROL [Concomitant]
     Active Substance: CALCIUM\CHOLECALCIFEROL
     Indication: Product used for unknown indication
     Dosage: UNK UNK, DAILY (ONCE IN THE MORNING PER DAY)
     Route: 065
     Dates: start: 20191010
  19. GOSERELIN [Concomitant]
     Active Substance: GOSERELIN
     Indication: Hormone receptor positive HER2 negative breast cancer
     Dosage: 3.6 MG, MONTHLY (1/M)
     Route: 058
     Dates: start: 20190828, end: 20220405
  20. GOSERELIN [Concomitant]
     Active Substance: GOSERELIN
     Dosage: UNK UNK, UNKNOWN
     Route: 065
     Dates: start: 20190828
  21. AFINITOR [Concomitant]
     Active Substance: EVEROLIMUS
     Indication: Hormone receptor positive HER2 negative breast cancer
     Dosage: 2.5 MG, DAILY
     Route: 048
     Dates: start: 20230426, end: 20230501
  22. AFINITOR [Concomitant]
     Active Substance: EVEROLIMUS
     Dosage: 2.5 MG, DAILY
     Route: 048
     Dates: start: 20230523
  23. ACETAMINOPHEN [Concomitant]
     Active Substance: ACETAMINOPHEN
     Indication: Myalgia
     Dosage: 500 MG, UNKNOWN
     Route: 065
     Dates: start: 20191101, end: 20191101

REACTIONS (39)
  - Pathological fracture [Recovered/Resolved]
  - Spinal pain [Recovered/Resolved]
  - Amenorrhoea [Recovered/Resolved]
  - Back pain [Recovered/Resolved]
  - Influenza like illness [Recovered/Resolved]
  - Dysuria [Recovered/Resolved]
  - Back pain [Recovered/Resolved]
  - Constipation [Recovered/Resolved]
  - Musculoskeletal stiffness [Not Recovered/Not Resolved]
  - Libido decreased [Not Recovered/Not Resolved]
  - Coronavirus infection [Recovered/Resolved]
  - Coronavirus infection [Recovered/Resolved]
  - Fall [Recovered/Resolved]
  - Selenium deficiency [Unknown]
  - Rash pustular [Recovered/Resolved]
  - Mucosal inflammation [Recovered/Resolved]
  - Amenorrhoea [Not Recovered/Not Resolved]
  - Vitamin B complex deficiency [Not Recovered/Not Resolved]
  - Disturbance in attention [Not Recovered/Not Resolved]
  - Constipation [Recovered/Resolved]
  - Gait disturbance [Recovered/Resolved]
  - Myalgia [Recovered/Resolved]
  - Back pain [Not Recovered/Not Resolved]
  - Dyspepsia [Recovering/Resolving]
  - Headache [Recovered/Resolved]
  - Headache [Recovered/Resolved]
  - Headache [Recovered/Resolved]
  - Headache [Not Recovered/Not Resolved]
  - Headache [Recovered/Resolved]
  - Diarrhoea [Recovered/Resolved]
  - Vomiting [Recovered/Resolved]
  - Stomatitis [Not Recovered/Not Resolved]
  - Fatigue [Recovered/Resolved]
  - Fatigue [Not Recovered/Not Resolved]
  - Alanine aminotransferase increased [Recovered/Resolved]
  - Nausea [Recovered/Resolved]
  - Rash [Recovered/Resolved]
  - Dry skin [Recovered/Resolved]
  - Aspartate aminotransferase increased [Unknown]

NARRATIVE: CASE EVENT DATE: 20190830
